FAERS Safety Report 8576666-1 (Version None)
Quarter: 2012Q3

REPORT INFORMATION
  Report Type: 
  Country: None (occurrence: None)
  Receive Date: 20120807
  Receipt Date: 20120801
  Transmission Date: 20120928
  Serious: Yes (Hospitalization, Other)
  Sender: FDA-Public Use
  Company Number: BR-PFIZER INC-2012187896

PATIENT
  Age: 69 Year
  Sex: Female
  Weight: 99 kg

DRUGS (7)
  1. LOSARTAN POTASSIUM [Concomitant]
  2. ASPIRIN [Concomitant]
     Dosage: UNK
  3. CLOPIDOGREL BISULFATE [Concomitant]
  4. METFORMIN HYDROCHLORIDE [Concomitant]
  5. LIPITOR [Suspect]
     Dosage: UNK
     Route: 048
  6. ATENOLOL [Concomitant]
  7. OMEPRAZOLE [Concomitant]

REACTIONS (2)
  - ARTERIAL DISORDER [None]
  - ANGIOPATHY [None]
